FAERS Safety Report 6046999-1 (Version None)
Quarter: 2009Q1

REPORT INFORMATION
  Report Type: 
  Country: None (occurrence: None)
  Receive Date: 20090122
  Receipt Date: 20090112
  Transmission Date: 20090719
  Serious: Yes (Other)
  Sender: FDA-Public Use
  Company Number: US-MERCK-0805USA00688

PATIENT
  Age: 56 Year
  Sex: Female

DRUGS (1)
  1. FOSAMAX [Suspect]
     Route: 048

REACTIONS (21)
  - ABSCESS [None]
  - ARTHRALGIA [None]
  - BREAST CANCER [None]
  - BREATH ODOUR [None]
  - BRUXISM [None]
  - DENTAL CARIES [None]
  - DERMATITIS CONTACT [None]
  - DRUG HYPERSENSITIVITY [None]
  - EDENTULOUS [None]
  - FISTULA DISCHARGE [None]
  - FUNGAL INFECTION [None]
  - HEADACHE [None]
  - IMPAIRED HEALING [None]
  - ORAL INFECTION [None]
  - OSTEONECROSIS [None]
  - PAIN IN EXTREMITY [None]
  - PULPITIS DENTAL [None]
  - SENSITIVITY OF TEETH [None]
  - SINUS DISORDER [None]
  - TOOTH DEPOSIT [None]
  - TOOTH DISORDER [None]
